FAERS Safety Report 5063954-9 (Version None)
Quarter: 2006Q3

REPORT INFORMATION
  Report Type: 
  Country: None (occurrence: None)
  Receive Date: 20060727
  Receipt Date: 20060213
  Transmission Date: 20061208
  Serious: Yes (Hospitalization, Other)
  Sender: FDA-Public Use
  Company Number: US-MERCK-0602USA04024

PATIENT
  Age: 71 Year
  Sex: Male
  Weight: 72 kg

DRUGS (6)
  1. INVANZ [Suspect]
     Indication: INFECTION
     Route: 042
     Dates: start: 20051226, end: 20060119
  2. FOLIC ACID [Concomitant]
     Route: 065
  3. CELEBREX [Concomitant]
     Route: 065
  4. PERCOCET [Concomitant]
     Route: 065
  5. PREDNISONE [Concomitant]
     Route: 065
  6. ACETAMINOPHEN [Concomitant]
     Route: 065

REACTIONS (4)
  - CONVULSION [None]
  - FALL [None]
  - FEMUR FRACTURE [None]
  - GENERAL SYMPTOM [None]
